FAERS Safety Report 24224727 (Version 1)
Quarter: 2024Q3

REPORT INFORMATION
  Report Type: Spontaneous
  Country: US (occurrence: US)
  Receive Date: 20240819
  Receipt Date: 20240819
  Transmission Date: 20241016
  Serious: Yes (Hospitalization)
  Sender: BRISTOL MYERS SQUIBB
  Company Number: US-BRISTOL-MYERS SQUIBB COMPANY-2024-130430

PATIENT
  Age: 55 Year
  Sex: Female

DRUGS (4)
  1. ABRAXANE [Suspect]
     Active Substance: PACLITAXEL
     Indication: Breast cancer female
     Dosage: FREQ : DAY 1, 8 AND 15 EVERY 28 DAYS
     Route: 042
     Dates: start: 20240516
  2. ABRAXANE [Suspect]
     Active Substance: PACLITAXEL
     Dosage: FREQ : DAY 1, 8 AND 15 EVERY 28 DAYS
     Route: 042
     Dates: start: 20240717
  3. ABRAXANE [Suspect]
     Active Substance: PACLITAXEL
     Dosage: FREQ : DAY 1, 8 AND 15 EVERY 28 DAYS
     Route: 042
     Dates: start: 20240726
  4. ABRAXANE [Suspect]
     Active Substance: PACLITAXEL
     Dosage: FREQ : DAY 1, 8 AND 15 EVERY 28 DAYS
     Route: 042
     Dates: start: 20240802

REACTIONS (2)
  - Hospitalisation [Unknown]
  - Off label use [Unknown]

NARRATIVE: CASE EVENT DATE: 20240721
